FAERS Safety Report 4473841-2 (Version None)
Quarter: 2004Q4

REPORT INFORMATION
  Report Type: 
  Country: None (occurrence: None)
  Receive Date: 20041008
  Receipt Date: 20041008
  Transmission Date: 20050328
  Serious: Yes (Other)
  Sender: FDA-Public Use
  Company Number: None

PATIENT
  Sex: Female
  Weight: 67.1324 kg

DRUGS (4)
  1. LEVOTHYROXINE SODIUM [Suspect]
     Indication: THYROID DISORDER
     Dosage: 1 PER DAY
     Dates: start: 20040810
  2. GLUCOSAMINE/CHONDROITIN [Concomitant]
  3. PAXIL [Concomitant]
  4. WELLBUTRIN [Concomitant]

REACTIONS (4)
  - DIARRHOEA [None]
  - FATIGUE [None]
  - NAUSEA [None]
  - WEIGHT INCREASED [None]
